FAERS Safety Report 5861698-4 (Version None)
Quarter: 2008Q3

REPORT INFORMATION
  Report Type: 
  Country: None (occurrence: None)
  Receive Date: 20080826
  Receipt Date: 20080814
  Transmission Date: 20090109
  Serious: Yes (Death, Hospitalization)
  Sender: FDA-Public Use
  Company Number: MIN-00375

PATIENT
  Age: 77 Year
  Sex: Female

DRUGS (1)
  1. MINOCYCLINE HCL [Suspect]
     Indication: RICKETTSIOSES NOT TICK BORNE
     Dosage: 200 MG/DAY
     Dates: start: 20040721, end: 20040723

REACTIONS (5)
  - ALTERED STATE OF CONSCIOUSNESS [None]
  - DISSEMINATED INTRAVASCULAR COAGULATION [None]
  - ESCHAR [None]
  - HYPOTENSION [None]
  - MULTI-ORGAN FAILURE [None]
